FAERS Safety Report 17365707 (Version 1)
Quarter: 2020Q1

REPORT INFORMATION
  Report Type: Report from Study
  Country: US (occurrence: US)
  Receive Date: 20200204
  Receipt Date: 20200204
  Transmission Date: 20200409
  Serious: Yes (Hospitalization, Other)
  Sender: FDA-Public Use
  Company Number: US-MYLANLABS-2020M1012086

PATIENT
  Age: 57 Year
  Sex: Female
  Weight: 77 kg

DRUGS (6)
  1. PREDNISONE. [Suspect]
     Active Substance: PREDNISONE
     Dosage: UNK UNK, ONCE DAILY
     Route: 048
  2. PREDNISONE. [Suspect]
     Active Substance: PREDNISONE
     Indication: RENAL TRANSPLANT
     Dosage: 5 MILLIGRAM, QD
     Route: 048
     Dates: start: 20190912
  3. METHYLPREDNISOLONE. [Suspect]
     Active Substance: METHYLPREDNISOLONE
     Indication: RENAL TRANSPLANT
     Dosage: 5 MILLIGRAM, QD
     Route: 048
     Dates: start: 20190912
  4. PROGRAFT [Suspect]
     Active Substance: TACROLIMUS
     Indication: TRANSPLANT
     Dosage: VARIED DOSE EVERY 12 HOURS
     Route: 048
     Dates: start: 20190913
  5. SIMULECT [Suspect]
     Active Substance: BASILIXIMAB
     Indication: TRANSPLANT
     Dosage: 20 MILLIGRAM, BID
     Route: 042
     Dates: start: 20190911, end: 20190916
  6. METHYLPREDNISOLONE. [Suspect]
     Active Substance: METHYLPREDNISOLONE
     Dosage: UNK UNK, ONCE DAILY
     Route: 048

REACTIONS (1)
  - Polyomavirus-associated nephropathy [Not Recovered/Not Resolved]

NARRATIVE: CASE EVENT DATE: 20191231
